FAERS Safety Report 8481230-9 (Version None)
Quarter: 2012Q2

REPORT INFORMATION
  Report Type: 
  Country: None (occurrence: None)
  Receive Date: 20120625
  Receipt Date: 20120608
  Transmission Date: 20120825
  Serious: Yes (Life-Threatening, Hospitalization, Other)
  Sender: FDA-Public Use
  Company Number: 2012P1035656

PATIENT
  Age: 48 Year
  Sex: Male

DRUGS (1)
  1. CEFUROXIME [Suspect]
     Dosage: 1.5 GM; IV
     Route: 042
     Dates: start: 20100510

REACTIONS (6)
  - DRUG HYPERSENSITIVITY [None]
  - ARTHRALGIA [None]
  - APPARENT LIFE THREATENING EVENT [None]
  - OXYGEN SATURATION DECREASED [None]
  - ANAPHYLACTIC SHOCK [None]
  - CARDIAC DISORDER [None]
